FAERS Safety Report 9726606 (Version 3)
Quarter: 2014Q1

REPORT INFORMATION
  Report Type: Report from Study
  Country: JP (occurrence: JP)
  Receive Date: 20131203
  Receipt Date: 20140310
  Transmission Date: 20141002
  Serious: Yes (Other)
  Sender: FDA-Public Use
  Company Number: JP-GLAXOSMITHKLINE-B0949266A

PATIENT
  Age: 87 Year
  Sex: Male
  Weight: 49 kg

DRUGS (7)
  1. REQUIP [Suspect]
     Indication: PARKINSON^S DISEASE
     Dosage: 8MG PER DAY
     Route: 048
     Dates: start: 20131008, end: 20131121
  2. MENESIT [Concomitant]
     Indication: PARKINSON^S DISEASE
     Route: 048
     Dates: end: 20131009
  3. MENESIT [Concomitant]
     Indication: PARKINSON^S DISEASE
     Route: 048
     Dates: start: 20131010
  4. FP [Concomitant]
     Indication: PARKINSON^S DISEASE
     Route: 048
     Dates: end: 20131020
  5. FP [Concomitant]
     Indication: PARKINSON^S DISEASE
     Route: 048
     Dates: start: 20131021, end: 20131023
  6. ARICEPT D [Concomitant]
     Route: 048
  7. AMLODIPINE [Concomitant]
     Route: 048

REACTIONS (1)
  - Sudden onset of sleep [Recovered/Resolved]
